FAERS Safety Report 9250850 (Version 2)
Quarter: 2013Q2

REPORT INFORMATION
  Report Type: Report from Study
  Country: BR (occurrence: BR)
  Receive Date: 20130424
  Receipt Date: 20130620
  Transmission Date: 20140414
  Serious: Yes (Death, Other)
  Sender: FDA-Public Use
  Company Number: PHHY2013BR038696

PATIENT
  Age: 93 Year
  Sex: Male

DRUGS (1)
  1. FORASEQ [Suspect]
     Indication: RESPIRATORY FAILURE
     Dosage: 2 DF, A DAY, WHEN THIS WAS NECESSARY

REACTIONS (3)
  - Death [Fatal]
  - Cardiac disorder [Unknown]
  - Expired drug administered [Unknown]
